FAERS Safety Report 15934831 (Version 3)
Quarter: 2019Q1

REPORT INFORMATION
  Report Type: Spontaneous
  Country: US (occurrence: US)
  Receive Date: 20190207
  Receipt Date: 20190314
  Transmission Date: 20190417
  Serious: Yes (Other)
  Sender: FDA-Public Use
  Company Number: US-ASTRAZENECA-2019SE09767

PATIENT
  Sex: Female

DRUGS (31)
  1. NEXIUM [Suspect]
     Active Substance: ESOMEPRAZOLE MAGNESIUM
     Dosage: GENERIC
     Route: 048
     Dates: start: 20150501
  2. AVELOX [Concomitant]
     Active Substance: MOXIFLOXACIN HYDROCHLORIDE
  3. DILTIAZ [Concomitant]
     Active Substance: DILTIAZEM HYDROCHLORIDE
  4. PROVENTIL [Concomitant]
     Active Substance: ALBUTEROL
  5. NEXIUM [Suspect]
     Active Substance: ESOMEPRAZOLE MAGNESIUM
     Route: 048
     Dates: start: 20150213
  6. HYDROCODONE [Concomitant]
     Active Substance: HYDROCODONE
  7. PROAIR HFA [Concomitant]
     Active Substance: ALBUTEROL SULFATE
  8. NEXIUM [Suspect]
     Active Substance: ESOMEPRAZOLE MAGNESIUM
     Route: 048
     Dates: start: 20081217
  9. MELOXICAM. [Concomitant]
     Active Substance: MELOXICAM
  10. CEPHALEXIN. [Concomitant]
     Active Substance: CEPHALEXIN
  11. TRAMADOL. [Concomitant]
     Active Substance: TRAMADOL
  12. VESICARE [Concomitant]
     Active Substance: SOLIFENACIN SUCCINATE
  13. AMOXICILLIN. [Concomitant]
     Active Substance: AMOXICILLIN
  14. DILACOR [Concomitant]
  15. NEXIUM [Suspect]
     Active Substance: ESOMEPRAZOLE MAGNESIUM
     Route: 048
     Dates: start: 20090220
  16. NEXIUM [Suspect]
     Active Substance: ESOMEPRAZOLE MAGNESIUM
     Route: 048
     Dates: start: 20160509
  17. CEFACLOR. [Concomitant]
     Active Substance: CEFACLOR
  18. SPIRIVA [Concomitant]
     Active Substance: TIOTROPIUM BROMIDE MONOHYDRATE
  19. OXYCODONE [Concomitant]
     Active Substance: OXYCODONE
  20. SYMBICORT [Concomitant]
     Active Substance: BUDESONIDE\FORMOTEROL FUMARATE DIHYDRATE
  21. ASACOL [Concomitant]
     Active Substance: MESALAMINE
  22. FOSAMAX [Concomitant]
     Active Substance: ALENDRONATE SODIUM
  23. SULFAMETHOXAZOLE [Concomitant]
     Active Substance: SULFAMETHOXAZOLE
  24. METOCLOPRAMIDE. [Concomitant]
     Active Substance: METOCLOPRAMIDE
  25. LEVAQUIN [Concomitant]
     Active Substance: LEVOFLOXACIN
  26. PREDNISONE. [Concomitant]
     Active Substance: PREDNISONE
  27. CYCLOBENZAPRINE. [Concomitant]
     Active Substance: CYCLOBENZAPRINE
  28. CEFACLOR. [Concomitant]
     Active Substance: CEFACLOR
  29. CLINDAMYCIN. [Concomitant]
     Active Substance: CLINDAMYCIN
  30. OMEPRAZOLE. [Concomitant]
     Active Substance: OMEPRAZOLE
  31. NEXIUM [Suspect]
     Active Substance: ESOMEPRAZOLE MAGNESIUM
     Route: 048
     Dates: start: 20081217

REACTIONS (5)
  - Chronic kidney disease [Unknown]
  - Renal failure [Unknown]
  - Rebound acid hypersecretion [Unknown]
  - Renal injury [Unknown]
  - Hyperparathyroidism secondary [Unknown]
